FAERS Safety Report 5903092-3 (Version None)
Quarter: 2008Q3

REPORT INFORMATION
  Report Type: 
  Country: None (occurrence: None)
  Receive Date: 20080930
  Receipt Date: 20080918
  Transmission Date: 20090109
  Serious: Yes (Hospitalization)
  Sender: FDA-Public Use
  Company Number: FR-ROCHE-564699

PATIENT
  Sex: Male
  Weight: 70 kg

DRUGS (7)
  1. CAPECITABINE [Suspect]
     Indication: COLORECTAL CANCER
     Dosage: PERMANENTLY DISCONTINUED. CUMULATIVE DOSE: 19500MG LAST DOSE PRIOR TO SAE: 02 MAY 2008
     Route: 048
     Dates: start: 20080411, end: 20080502
  2. RADIOPHARMACEUTICALS [Suspect]
     Indication: COLORECTAL CANCER
     Dosage: DRUG NAME: RADIOTHERAPY, DOSE: 1.8GY, CUMULATIVE DOSE:27GY PERMANENTLY DISCONTINUED.
     Route: 065
     Dates: start: 20080411, end: 20080502
  3. ALDACTAZINE [Concomitant]
  4. DIAMICRON [Concomitant]
  5. FENOFIBRATE [Concomitant]
  6. TAZOCILLINE [Concomitant]
  7. TRIFLUCAN [Concomitant]

REACTIONS (4)
  - FEBRILE BONE MARROW APLASIA [None]
  - METABOLIC ACIDOSIS [None]
  - NECROTISING COLITIS [None]
  - OESOPHAGITIS [None]
